FAERS Safety Report 8167370-2 (Version None)
Quarter: 2012Q1

REPORT INFORMATION
  Report Type: 
  Country: None (occurrence: None)
  Receive Date: 20120227
  Receipt Date: 20120223
  Transmission Date: 20120608
  Serious: No
  Sender: FDA-Public Use
  Company Number: US-B.I. PHARMACEUTICALS,INC./RIDGEFIELD-2012-BP-03558BP

PATIENT
  Sex: Female

DRUGS (6)
  1. HYDRALAZINE HCL [Concomitant]
     Indication: HYPERTENSION
     Dosage: 75 MG
     Route: 048
     Dates: start: 20090101
  2. HYDROCHLOROTHIAZIDE [Concomitant]
     Indication: HYPERTENSION
     Route: 048
     Dates: start: 20100101
  3. LOSARTAN POTASSIUM [Concomitant]
     Indication: HYPERTENSION
     Dosage: 500 MG
     Route: 048
     Dates: start: 20090101
  4. TRADJENTA [Suspect]
     Indication: TYPE 2 DIABETES MELLITUS
     Dosage: 5 MG
     Route: 048
     Dates: start: 20111001, end: 20120215
  5. TRADJENTA [Suspect]
     Dosage: 5 MG
     Route: 048
     Dates: start: 20120221, end: 20120221
  6. METOPROLOL TARTRATE [Concomitant]
     Indication: HYPERTENSION
     Dosage: 100 MG
     Route: 048
     Dates: start: 20090101

REACTIONS (4)
  - PULMONARY CONGESTION [None]
  - COUGH [None]
  - RHINORRHOEA [None]
  - SNEEZING [None]
